FAERS Safety Report 21479657 (Version 13)
Quarter: 2023Q2

REPORT INFORMATION
  Report Type: Report from Study
  Country: ES (occurrence: ES)
  Receive Date: 20221019
  Receipt Date: 20230512
  Transmission Date: 20230721
  Serious: Yes (Hospitalization, Disabling, Other)
  Sender: FDA-Public Use
  Company Number: ES-AMGEN-ESPCT2022178503

PATIENT
  Age: 4 Year
  Sex: Female

DRUGS (16)
  1. CARFILZOMIB [Suspect]
     Active Substance: CARFILZOMIB
     Indication: Acute lymphocytic leukaemia
     Dosage: 38.08 MILLIGRAM
     Route: 040
     Dates: start: 20221014
  2. METHOTREXATE [Suspect]
     Active Substance: METHOTREXATE
     Indication: Acute lymphocytic leukaemia
     Dosage: 12 MILLIGRAM
     Route: 065
     Dates: start: 20221013, end: 20221021
  3. HYDROCORTISONE [Suspect]
     Active Substance: HYDROCORTISONE
     Indication: Acute lymphocytic leukaemia
     Dosage: 15 MILLIGRAM
     Route: 029
     Dates: start: 20221013, end: 20221013
  4. VINCRISTINE [Concomitant]
     Active Substance: VINCRISTINE
     Dosage: 1.02 MILLIGRAM
     Dates: start: 20221014, end: 20221028
  5. DEXAMETHASONE [Concomitant]
     Active Substance: DEXAMETHASONE
     Dosage: 2.5 MILLIGRAM
     Dates: start: 20221014
  6. OMEPRAZOLE [Concomitant]
     Active Substance: OMEPRAZOLE
     Dosage: 8 MILLIGRAM
     Route: 048
     Dates: start: 20221014
  7. SULFAMETHOXAZOLE\TRIMETHOPRIM [Concomitant]
     Active Substance: SULFAMETHOXAZOLE\TRIMETHOPRIM
     Dosage: 40 MILLIGRAM
     Route: 048
     Dates: start: 20221013
  8. DEXCHLORPHENIRAMINE [Concomitant]
     Active Substance: DEXCHLORPHENIRAMINE
     Dosage: 1.62 MILLIGRAM
     Route: 042
     Dates: start: 20221012
  9. ONDANSETRON [Concomitant]
     Active Substance: ONDANSETRON
     Dosage: 3 MILLIGRAM
     Route: 042
     Dates: start: 20221012
  10. ACETAMINOPHEN [Concomitant]
     Active Substance: ACETAMINOPHEN
     Dosage: 162 MILLIGRAM
     Route: 042
     Dates: start: 20221012
  11. METAMIZOL [Concomitant]
     Active Substance: METAMIZOLE SODIUM
     Dosage: 320 MILLIGRAM
     Route: 042
     Dates: start: 20221012
  12. FUROSEMIDE [Concomitant]
     Active Substance: FUROSEMIDE
     Dosage: 4 MILLIGRAM
     Route: 040
     Dates: start: 20221013
  13. HYDROXYUREA [Concomitant]
     Active Substance: HYDROXYUREA
     Dosage: 500 MILLIGRAM
     Route: 048
     Dates: start: 20221012, end: 20221014
  14. KONAKION [Concomitant]
     Active Substance: PHYTONADIONE
     Dosage: 5 MILLIGRAM
     Route: 042
     Dates: start: 20221014, end: 20221016
  15. CEFEPIME HYDROCHLORIDE [Concomitant]
     Active Substance: CEFEPIME HYDROCHLORIDE
     Dosage: 810 MILLIGRAM
     Dates: start: 20221012, end: 20221027
  16. CEFEPIME [Concomitant]
     Active Substance: CEFEPIME HYDROCHLORIDE
     Dosage: 810 MILLIGRAM
     Dates: start: 20221012, end: 20221027

REACTIONS (1)
  - Consciousness fluctuating [Recovered/Resolved]

NARRATIVE: CASE EVENT DATE: 20221015
